FAERS Safety Report 5429376-3 (Version None)
Quarter: 2007Q3

REPORT INFORMATION
  Report Type: 
  Country: None (occurrence: None)
  Receive Date: 20070829
  Receipt Date: 20070820
  Transmission Date: 20080115
  Serious: No
  Sender: FDA-Public Use
  Company Number: US-JNJFOC-20070702228

PATIENT
  Sex: Female
  Weight: 113.4 kg

DRUGS (5)
  1. INVEGA [Suspect]
     Indication: BIPOLAR DISORDER
     Route: 048
  2. INVEGA [Suspect]
     Indication: SCHIZOPHRENIA
     Route: 048
  3. TRAZODONE HCL [Concomitant]
     Indication: SLEEP DISORDER
  4. ZANTAC 150 [Concomitant]
     Indication: GASTROOESOPHAGEAL REFLUX DISEASE
     Route: 048
  5. ALBUTEROL [Concomitant]
     Indication: ASTHMA

REACTIONS (8)
  - AMENORRHOEA [None]
  - DIARRHOEA [None]
  - DIZZINESS [None]
  - GASTROINTESTINAL DISORDER [None]
  - HEADACHE [None]
  - HYPOTENSION [None]
  - MUSCLE SPASMS [None]
  - VOMITING [None]
